FAERS Safety Report 5792144-7 (Version None)
Quarter: 2008Q2

REPORT INFORMATION
  Report Type: 
  Country: None (occurrence: None)
  Receive Date: 20080626
  Receipt Date: 20080602
  Transmission Date: 20081010
  Serious: Yes (Death, Hospitalization, Other)
  Sender: FDA-Public Use
  Company Number: CH-ELI_LILLY_AND_COMPANY-CH200806000453

PATIENT
  Age: 72 Year
  Sex: Female

DRUGS (5)
  1. BYETTA [Suspect]
     Indication: TYPE 2 DIABETES MELLITUS
     Dosage: 10 UG, 2/D
     Route: 058
     Dates: start: 20071001, end: 20080505
  2. LANTUS [Concomitant]
     Indication: DIABETES MELLITUS
     Dosage: 14 U, DAILY (1/D)
     Route: 058
     Dates: start: 20080414, end: 20080505
  3. GLUCOPHAGE [Concomitant]
     Indication: DIABETES MELLITUS
     Dosage: 850 MG, 3/D
     Route: 048
     Dates: start: 19910101, end: 20080505
  4. COAPROVEL [Concomitant]
     Indication: HYPERTENSION
     Dosage: 150 MG, DAILY (1/D)
     Route: 048
     Dates: start: 20010801
  5. ELTROXIN [Concomitant]
     Indication: HYPOTHYROIDISM
     Dosage: 0.1 MG, DAILY (1/D)
     Route: 048
     Dates: start: 19890101

REACTIONS (29)
  - ARRHYTHMIA [None]
  - ASTHENIA [None]
  - ATRIAL FIBRILLATION [None]
  - AUTOIMMUNE THYROIDITIS [None]
  - BLINDNESS [None]
  - CALCULUS BLADDER [None]
  - CARCINOID TUMOUR [None]
  - CARDIOGENIC SHOCK [None]
  - COMA [None]
  - DIVERTICULUM [None]
  - DRUG TOXICITY [None]
  - EPIGLOTTIS ULCER [None]
  - GLOMERULOSCLEROSIS [None]
  - GLYCOSYLATED HAEMOGLOBIN INCREASED [None]
  - HEPATIC STEATOSIS [None]
  - HYPOGLYCAEMIA [None]
  - HYPOTHERMIA [None]
  - METABOLIC ACIDOSIS [None]
  - MYOSCLEROSIS [None]
  - NAUSEA [None]
  - NEPHRITIS INTERSTITIAL [None]
  - RENAL ARTERIOSCLEROSIS [None]
  - RENAL FAILURE ACUTE [None]
  - RIB FRACTURE [None]
  - VASOPLEGIA SYNDROME [None]
  - VENTRICULAR FIBRILLATION [None]
  - VENTRICULAR HYPERTROPHY [None]
  - VOMITING [None]
  - WEIGHT DECREASED [None]
